FAERS Safety Report 10082982 (Version 1)
Quarter: 2014Q2

REPORT INFORMATION
  Report Type: Spontaneous
  Country: US (occurrence: US)
  Receive Date: 20140417
  Receipt Date: 20140417
  Transmission Date: 20141212
  Serious: No
  Sender: FDA-Public Use
  Company Number: US-009507513-1404USA008256

PATIENT
  Age: 15 Year
  Sex: Female
  Weight: 49.89 kg

DRUGS (2)
  1. IMPLANON [Suspect]
     Indication: CONTRACEPTION
     Dosage: 3 YEAR IMPLANT
     Route: 059
     Dates: start: 20110330
  2. CONCERTA [Concomitant]
     Indication: COMBINED IMMUNODEFICIENCY

REACTIONS (2)
  - Menstruation irregular [Unknown]
  - Incorrect drug administration duration [Unknown]
